FAERS Safety Report 17944620 (Version 1)
Quarter: 2020Q2

REPORT INFORMATION
  Report Type: Spontaneous
  Country: CN (occurrence: CN)
  Receive Date: 20200625
  Receipt Date: 20200625
  Transmission Date: 20200714
  Serious: Yes (Hospitalization)
  Sender: FDA-Public Use
  Company Number: CN-PFIZER INC-2020243527

PATIENT
  Age: 56 Year
  Sex: Male
  Weight: 70 kg

DRUGS (1)
  1. LINEZOLID. [Suspect]
     Active Substance: LINEZOLID
     Indication: JOINT ABSCESS
     Dosage: 0.6 G, 2X/DAY
     Route: 041
     Dates: start: 20200613, end: 20200616

REACTIONS (2)
  - Abdominal discomfort [Recovering/Resolving]
  - Chest discomfort [Recovering/Resolving]

NARRATIVE: CASE EVENT DATE: 20200616
